FAERS Safety Report 24350783 (Version 1)
Quarter: 2024Q3

REPORT INFORMATION
  Report Type: Report from Study
  Country: US (occurrence: US)
  Receive Date: 20240923
  Receipt Date: 20240923
  Transmission Date: 20241017
  Serious: Yes (Other)
  Sender: PFIZER
  Company Number: US-PFIZER INC-202400084559

PATIENT
  Age: 45 Year
  Sex: Female
  Weight: 48.63 kg

DRUGS (1)
  1. HEPARIN SODIUM [Suspect]
     Active Substance: HEPARIN SODIUM
     Indication: Deep vein thrombosis
     Dosage: UNK
     Route: 041

REACTIONS (2)
  - Thrombocytopenia [Recovering/Resolving]
  - Neutropenia [Recovering/Resolving]
